FAERS Safety Report 9070126 (Version 1)
Quarter: 2013Q1

REPORT INFORMATION
  Report Type: Report from Study
  Country: US (occurrence: US)
  Receive Date: 20130129
  Receipt Date: 20130129
  Transmission Date: 20140127
  Serious: No
  Sender: FDA-Public Use
  Company Number: US-ABBOTT-12P-163-0940227-00

PATIENT
  Sex: Female

DRUGS (11)
  1. HUMIRA 40 MG/0.8 ML PEN [Suspect]
     Indication: PSORIATIC ARTHROPATHY
     Route: 058
     Dates: start: 20120217, end: 201204
  2. TOPAMAX [Concomitant]
     Indication: MIGRAINE
  3. DIOVAN HCT [Concomitant]
     Indication: HYPERTENSION
  4. CYCLOBENZAPRINE [Concomitant]
     Indication: PSORIATIC ARTHROPATHY
  5. PREVACID [Concomitant]
     Indication: GASTROOESOPHAGEAL REFLUX DISEASE
  6. LIPITOR [Concomitant]
     Indication: BLOOD CHOLESTEROL INCREASED
  7. LEXAPRO [Concomitant]
     Indication: DEPRESSION
  8. XANAX [Concomitant]
     Indication: ANXIETY
  9. CALCIUM WITH VITAMIN D [Concomitant]
     Indication: SUPPLEMENTATION THERAPY
  10. COLACE [Concomitant]
     Indication: CONSTIPATION
  11. VICODIN [Concomitant]
     Indication: PAIN

REACTIONS (2)
  - Faeces discoloured [Unknown]
  - Abdominal pain [Unknown]
